FAERS Safety Report 11537869 (Version 1)
Quarter: 2015Q3

REPORT INFORMATION
  Report Type: Spontaneous
  Country: FR (occurrence: FR)
  Receive Date: 20150922
  Receipt Date: 20150922
  Transmission Date: 20151125
  Serious: Yes (Hospitalization)
  Sender: FDA-Public Use
  Company Number: FR-009507513-1509FRA009823

PATIENT
  Age: 15 Year
  Sex: Female

DRUGS (23)
  1. LEPTICUR [Concomitant]
     Active Substance: TROPATEPINE HYDROCHLORIDE
     Dosage: STRENGTH: 10MG/2ML, 1 DF, QD
     Route: 040
     Dates: start: 20150513, end: 20150527
  2. FASTURTEC [Concomitant]
     Active Substance: RASBURICASE
     Dosage: 10.5 MG, QD
     Route: 041
     Dates: start: 20150511, end: 20150511
  3. ZOPHREN (ONDANSETRON HYDROCHLORIDE) [Concomitant]
     Active Substance: ONDANSETRON HYDROCHLORIDE
     Dosage: 8 MG, BID
     Route: 041
     Dates: start: 20150510
  4. ZOVIRAX [Concomitant]
     Active Substance: ACYCLOVIR
     Dosage: 200 MG, QD
     Route: 041
     Dates: start: 20150510, end: 20150601
  5. TOPALGIC (SUPROFEN) [Concomitant]
     Active Substance: SUPROFEN
     Dosage: STRENGTH: 100MG/ML, 20 DROPS, QD
     Route: 048
     Dates: start: 20150511, end: 20150517
  6. PIPERACILLIN AND TAZOBACTAM [Suspect]
     Active Substance: PIPERACILLIN SODIUM\TAZOBACTAM SODIUM
     Dosage: STRENGTH: 4G/5ML, 1 DF, QID, FORMULATION: POWDER FOR SOLUTION FOR INFUSION
     Route: 041
     Dates: start: 20150511, end: 20150601
  7. PLITICAN [Concomitant]
     Active Substance: ALIZAPRIDE HYDROCHLORIDE
     Dosage: 50 MG, QID
     Route: 041
     Dates: start: 20150510, end: 20150728
  8. INEXIUM (ESOMEPRAZOLE MAGNESIUM) [Concomitant]
     Active Substance: ESOMEPRAZOLE MAGNESIUM
     Dosage: 1 DF, QD, FORMULATION: GASTRO RESISTANT TABLET
     Route: 048
     Dates: start: 20150510, end: 201509
  9. LARGACTIL [Concomitant]
     Active Substance: CHLORPROMAZINE
     Dosage: 30 MG, QD
     Route: 041
     Dates: start: 20150512, end: 20150526
  10. AMIKLIN [Concomitant]
     Active Substance: AMIKACIN SULFATE
     Dosage: 825 MG, QD
     Route: 040
     Dates: start: 20150516, end: 20150521
  11. ARACYTINE [Concomitant]
     Active Substance: CYTARABINE
     Dosage: 30 MG, ONCE
     Route: 037
     Dates: start: 20150513, end: 20150513
  12. SPASFON [Concomitant]
     Active Substance: PHLOROGLUCINOL
     Dosage: 1 DF, QD, FORMULATION: SOLUTION FOR INJECTION IN AMPOULE
     Route: 041
     Dates: start: 201505, end: 201506
  13. NOXAFIL [Suspect]
     Active Substance: POSACONAZOLE
     Dosage: STRENGHT:40MG/ML, 5 DF, TID
     Route: 048
     Dates: start: 20150510, end: 20150521
  14. PERFALGAN [Concomitant]
     Active Substance: ACETAMINOPHEN
     Dosage: 1 G, QID
     Route: 041
     Dates: start: 20150511
  15. ATARAX [Concomitant]
     Active Substance: HYDROXYZINE\HYDROXYZINE HYDROCHLORIDE
     Dosage: 50 MG, QD
     Route: 048
     Dates: start: 20150509, end: 201506
  16. BACTRIM [Concomitant]
     Active Substance: SULFAMETHOXAZOLE\TRIMETHOPRIM
     Dosage: 800 MG, TIW
     Route: 048
     Dates: start: 20150510
  17. FUNGIZONE [Concomitant]
     Active Substance: AMPHOTERICIN B
     Dosage: 5 ML, TID
     Route: 048
     Dates: start: 20150510, end: 201506
  18. CERNEVIT [Concomitant]
     Active Substance: VITAMINS
     Dosage: UNK
     Route: 041
     Dates: start: 20150511, end: 201509
  19. DEPO-MEDROL [Concomitant]
     Active Substance: METHYLPREDNISOLONE ACETATE
     Dosage: 20 MG, ONCE
     Route: 037
     Dates: start: 20150513, end: 20150513
  20. ARACYTINE [Concomitant]
     Active Substance: CYTARABINE
     Dosage: 310 MG, QD
     Route: 041
     Dates: start: 20150510, end: 20150516
  21. VANCOMYCIN [Concomitant]
     Active Substance: VANCOMYCIN
     Dosage: 2.2 G, QD
     Route: 041
     Dates: start: 20150511, end: 20150528
  22. MITOXANTRONE HYDROCHLORIDE. [Concomitant]
     Active Substance: MITOXANTRONE HYDROCHLORIDE
     Dosage: 18.6 MG, QD
     Route: 041
     Dates: start: 20150510, end: 20150514
  23. METHOTREXATE [Concomitant]
     Active Substance: METHOTREXATE
     Dosage: 15 MG, ONCE
     Route: 037
     Dates: start: 20150513, end: 20150513

REACTIONS (2)
  - Colitis [Not Recovered/Not Resolved]
  - Pancreatitis acute [Recovered/Resolved]

NARRATIVE: CASE EVENT DATE: 20150521
